FAERS Safety Report 25134266 (Version 1)
Quarter: 2025Q1

REPORT INFORMATION
  Report Type: Spontaneous
  Country: ZA (occurrence: ZA)
  Receive Date: 20250328
  Receipt Date: 20250328
  Transmission Date: 20250409
  Serious: Yes (Life-Threatening, Other)
  Sender: RANBAXY
  Company Number: ZA-SUN PHARMACEUTICAL INDUSTRIES LTD-2025R1-500930

PATIENT
  Age: 35 Year
  Weight: 83 kg

DRUGS (4)
  1. ESOMEPRAZOLE [Suspect]
     Active Substance: ESOMEPRAZOLE
     Indication: Abdominal discomfort
     Dosage: 20 MILLIGRAM, DAILY
     Route: 048
     Dates: start: 20250311, end: 20250311
  2. MEBEVERINE [Concomitant]
     Active Substance: MEBEVERINE
     Indication: Abdominal discomfort
     Dosage: 135 MILLIGRAM, DAILY
     Route: 048
     Dates: start: 20250311, end: 20250311
  3. Adco-Mefenamic [Concomitant]
     Indication: Abdominal pain upper
     Dosage: 250 MILLIGRAM, DAILY
     Route: 048
     Dates: start: 20250311, end: 20250311
  4. TEGRETOL XR [Concomitant]
     Active Substance: CARBAMAZEPINE
     Indication: Seizure
     Route: 048
     Dates: start: 20250311, end: 20250311

REACTIONS (5)
  - Seizure [Recovered/Resolved with Sequelae]
  - Fall [Recovering/Resolving]
  - Vision blurred [Recovering/Resolving]
  - Panic attack [Recovering/Resolving]
  - Hyperventilation [Recovering/Resolving]

NARRATIVE: CASE EVENT DATE: 20250311
